FAERS Safety Report 24379551 (Version 1)
Quarter: 2024Q3

REPORT INFORMATION
  Report Type: Report from Study
  Country: US (occurrence: US)
  Receive Date: 20240930
  Receipt Date: 20240930
  Transmission Date: 20241017
  Serious: Yes (Hospitalization)
  Sender: ABBVIE
  Company Number: US-ABBVIE-5939546

PATIENT
  Age: 82 Year
  Sex: Male

DRUGS (1)
  1. SKYRIZI [Suspect]
     Active Substance: RISANKIZUMAB-RZAA
     Indication: Crohn^s disease
     Route: 058
     Dates: start: 20240607

REACTIONS (6)
  - Pyrexia [Recovering/Resolving]
  - Weight decreased [Not Recovered/Not Resolved]
  - Crohn^s disease [Recovering/Resolving]
  - Abdominal discomfort [Not Recovered/Not Resolved]
  - Urinary tract infection [Recovering/Resolving]
  - Tremor [Recovering/Resolving]

NARRATIVE: CASE EVENT DATE: 20240901
